FAERS Safety Report 18313684 (Version 3)
Quarter: 2020Q4

REPORT INFORMATION
  Report Type: Spontaneous
  Country: US (occurrence: US)
  Receive Date: 20200925
  Receipt Date: 20201228
  Transmission Date: 20210113
  Serious: No
  Sender: FDA-Public Use
  Company Number: US-PFIZER INC-2020372083

PATIENT
  Age: 62 Year
  Sex: Female

DRUGS (1)
  1. XELJANZ XR [Suspect]
     Active Substance: TOFACITINIB CITRATE
     Indication: RHEUMATOID ARTHRITIS
     Dosage: 11 MG, DAILY
     Route: 048
     Dates: start: 202009, end: 202012

REACTIONS (6)
  - Myalgia [Unknown]
  - Red blood cell sedimentation rate increased [Unknown]
  - Contusion [Unknown]
  - Haematoma [Unknown]
  - Peripheral swelling [Unknown]
  - Headache [Unknown]

NARRATIVE: CASE EVENT DATE: 2020
